FAERS Safety Report 8806234 (Version 1)
Quarter: 2012Q4

REPORT INFORMATION
  Report Type: Spontaneous
  Country: DK (occurrence: None)
  Receive Date: 20120918
  Receipt Date: 20120918
  Transmission Date: 20130627
  Serious: Yes (Hospitalization, Other)
  Sender: FDA-Public Use
  Company Number: 2012MA011086

PATIENT
  Age: 60 None
  Sex: Female

DRUGS (2)
  1. METOCLOPRAMIDE [Suspect]
  2. METHOTREXATE [Concomitant]

REACTIONS (3)
  - Product packaging issue [None]
  - Malaise [None]
  - Product commingling [None]
